FAERS Safety Report 9856657 (Version 1)
Quarter: 2014Q1

REPORT INFORMATION
  Report Type: Spontaneous
  Country: BR (occurrence: BR)
  Receive Date: 20140130
  Receipt Date: 20140130
  Transmission Date: 20141002
  Serious: Yes (Other)
  Sender: FDA-Public Use
  Company Number: PHHY2014BR010904

PATIENT
  Sex: Female

DRUGS (2)
  1. FORASEQ [Suspect]
     Dosage: UNK UKN, UNK
  2. DEPO PROVERA [Suspect]
     Indication: ENDOMETRIOSIS
     Dosage: UNK UKN, UNK

REACTIONS (5)
  - Pulmonary embolism [Unknown]
  - Chest discomfort [Unknown]
  - Intervertebral disc disorder [Unknown]
  - Blood test abnormal [Unknown]
  - Weight increased [Unknown]
